FAERS Safety Report 5786405-5 (Version None)
Quarter: 2008Q2

REPORT INFORMATION
  Report Type: 
  Country: None (occurrence: None)
  Receive Date: 20080624
  Receipt Date: 20070719
  Transmission Date: 20081010
  Serious: No
  Sender: FDA-Public Use
  Company Number: US-ASTRAZENECA-2007UW17187

PATIENT
  Age: 70 Year
  Sex: Female
  Weight: 90.7 kg

DRUGS (4)
  1. PULMICORT-100 [Suspect]
     Indication: ASTHMA
     Dosage: 3 PUFFS BID
     Route: 055
  2. SPIRIVA [Concomitant]
  3. FLORADIL [Concomitant]
  4. SINGULAIR [Concomitant]

REACTIONS (3)
  - ASTHENIA [None]
  - DYSPNOEA [None]
  - FEELING ABNORMAL [None]
